FAERS Safety Report 5635895-7 (Version None)
Quarter: 2008Q1

REPORT INFORMATION
  Report Type: 
  Country: None (occurrence: None)
  Receive Date: 20080221
  Receipt Date: 20080215
  Transmission Date: 20080703
  Serious: Yes (Death, Hospitalization)
  Sender: FDA-Public Use
  Company Number: THQ2008A00365

PATIENT
  Age: 72 Year
  Sex: Female

DRUGS (3)
  1. PIOGLITAZONE HCL [Suspect]
     Dosage: 15 MG PER ORAL
     Route: 048
     Dates: start: 20010101
  2. ANTIDEPRESSANTS [Concomitant]
  3. RAMIPRIL [Concomitant]

REACTIONS (9)
  - COAGULOPATHY [None]
  - GASTROINTESTINAL HAEMORRHAGE [None]
  - HAEMODIALYSIS [None]
  - HEPATIC CIRRHOSIS [None]
  - HYPERCOAGULATION [None]
  - RECTAL HAEMORRHAGE [None]
  - RENAL FAILURE [None]
  - RESPIRATORY TRACT INFECTION [None]
  - VARICES OESOPHAGEAL [None]
